FAERS Safety Report 20278885 (Version 1)
Quarter: 2022Q1

REPORT INFORMATION
  Report Type: Spontaneous
  Country: TW (occurrence: TW)
  Receive Date: 20220103
  Receipt Date: 20220103
  Transmission Date: 20220423
  Serious: Yes (Death, Other)
  Sender: FDA-Public Use
  Company Number: TW-AMGEN-TWNSP2021206954

PATIENT

DRUGS (3)
  1. VECTIBIX [Suspect]
     Active Substance: PANITUMUMAB
     Indication: Colorectal cancer metastatic
     Dosage: 6 MILLIGRAM/KILOGRAM, Q2WK
     Route: 042
  2. DABRAFENIB [Suspect]
     Active Substance: DABRAFENIB
     Indication: Colorectal cancer metastatic
     Dosage: 150 MILLIGRAM, BID
     Route: 048
  3. TRAMETINIB [Suspect]
     Active Substance: TRAMETINIB
     Indication: Colorectal cancer metastatic
     Dosage: 2 MILLIGRAM, QD
     Route: 048

REACTIONS (15)
  - Death [Fatal]
  - Acute kidney injury [Unknown]
  - Colorectal cancer metastatic [Unknown]
  - Nausea [Unknown]
  - Hypertension [Unknown]
  - Diarrhoea [Unknown]
  - Dermatitis [Unknown]
  - Anaemia [Unknown]
  - Vomiting [Unknown]
  - Alopecia [Unknown]
  - Hepatic function abnormal [Unknown]
  - Paraesthesia [Unknown]
  - Rash [Unknown]
  - Vision blurred [Recovering/Resolving]
  - Therapy partial responder [Unknown]
